FAERS Safety Report 14689396 (Version 1)
Quarter: 2018Q1

REPORT INFORMATION
  Report Type: Spontaneous
  Country: US (occurrence: US)
  Receive Date: 20180328
  Receipt Date: 20180328
  Transmission Date: 20180509
  Serious: Yes (Other)
  Sender: FDA-Public Use
  Company Number: US-ASCEND THERAPEUTICS-2044682

PATIENT
  Age: 35 Year
  Sex: Female

DRUGS (1)
  1. ESTROGEL [Suspect]
     Active Substance: ESTRADIOL
     Indication: HORMONE REPLACEMENT THERAPY
     Route: 065

REACTIONS (3)
  - Off label use [None]
  - Withdrawal syndrome [Unknown]
  - Psychotic symptom [Unknown]
